FAERS Safety Report 4370092-7 (Version None)
Quarter: 2004Q2

REPORT INFORMATION
  Report Type: 
  Country: None (occurrence: None)
  Receive Date: 20040527
  Receipt Date: 20040510
  Transmission Date: 20050107
  Serious: Yes (Hospitalization)
  Sender: FDA-Public Use
  Company Number: FR_040403860

PATIENT
  Age: 34 Year
  Sex: Female

DRUGS (4)
  1. ZYPREXA [Suspect]
     Dosage: 10 MG/M2 DAY
     Dates: start: 20040331, end: 20040331
  2. PROZAC [Suspect]
     Indication: DEPRESSION
     Dosage: 20 MG/1 DAY
     Dates: start: 20040331
  3. CLONAZEPAM [Concomitant]
  4. TERCIAN (CYAMEMAZINE) [Concomitant]

REACTIONS (3)
  - ATRIOVENTRICULAR BLOCK [None]
  - LOSS OF CONSCIOUSNESS [None]
  - MALAISE [None]
